FAERS Safety Report 7253366-1 (Version None)
Quarter: 2011Q1

REPORT INFORMATION
  Report Type: 
  Country: None (occurrence: None)
  Receive Date: 20110129
  Receipt Date: 20100319
  Transmission Date: 20110831
  Serious: No
  Sender: FDA-Public Use
  Company Number: US-ABBOTT-10P-163-0633277-00

PATIENT
  Sex: Female
  Weight: 101.24 kg

DRUGS (5)
  1. UNKNOWN MEDICATION [Suspect]
     Indication: BLOOD PRESSURE
     Dosage: 2 PILLS
  2. ULTRAM [Suspect]
     Indication: PAIN
  3. HUMIRA [Suspect]
     Indication: RHEUMATOID ARTHRITIS
     Dates: start: 20100304
  4. LYRICA [Suspect]
     Indication: PAIN
  5. CYMBALTA [Suspect]
     Indication: PRODUCT USED FOR UNKNOWN INDICATION

REACTIONS (5)
  - MUSCULAR WEAKNESS [None]
  - NERVOUSNESS [None]
  - DIZZINESS [None]
  - FEELING ABNORMAL [None]
  - FEELING DRUNK [None]
